FAERS Safety Report 6921804-7 (Version None)
Quarter: 2010Q3

REPORT INFORMATION
  Report Type: 
  Country: None (occurrence: None)
  Receive Date: 20100806
  Receipt Date: 20100426
  Transmission Date: 20110219
  Serious: No
  Sender: FDA-Public Use
  Company Number: 2010-05853

PATIENT
  Age: 78 Year
  Sex: Male

DRUGS (3)
  1. RAPAFLO [Suspect]
     Indication: BENIGN PROSTATIC HYPERPLASIA
     Dosage: 1 CAPSULE, DAILY, ORAL
     Route: 048
     Dates: start: 20100401, end: 20100426
  2. WARFARIN SODIUM [Suspect]
     Indication: ANTICOAGULANT THERAPY
     Dosage: 5 MG, DAILY, ORAL
     Route: 048
     Dates: start: 20100101
  3. MULTAQ [Suspect]
     Indication: ATRIAL FIBRILLATION
     Dosage: 400 MG, BID, ORAL
     Route: 048
     Dates: start: 20100101

REACTIONS (2)
  - DRUG INTERACTION [None]
  - VISION BLURRED [None]
